FAERS Safety Report 5375859-4 (Version None)
Quarter: 2007Q3

REPORT INFORMATION
  Report Type: 
  Country: None (occurrence: None)
  Receive Date: 20070702
  Receipt Date: 20070620
  Transmission Date: 20080115
  Serious: Yes (Other)
  Sender: FDA-Public Use
  Company Number: PHBS2007IT10643

PATIENT
  Age: 42 Year
  Sex: Male

DRUGS (4)
  1. CERTICAN [Suspect]
     Dosage: 1 MG/D
     Route: 048
     Dates: start: 20070319
  2. ENAPREN [Suspect]
     Dosage: 40 MG/DAY
     Route: 048
     Dates: start: 19950907, end: 20070528
  3. ASPIRIN [Suspect]
     Dosage: 100 MG EVERY OTHER DAY
     Route: 048
     Dates: start: 19950713, end: 20070528
  4. CYCLOSPORINE [Suspect]
     Dosage: 120 MG/D
     Route: 048

REACTIONS (2)
  - ANGIOEDEMA [None]
  - SWELLING FACE [None]
